FAERS Safety Report 8988939 (Version 3)
Quarter: 2013Q1

REPORT INFORMATION
  Report Type: Report from Study
  Country: US (occurrence: US)
  Receive Date: 20121228
  Receipt Date: 20130322
  Transmission Date: 20140127
  Serious: Yes (Hospitalization)
  Sender: FDA-Public Use
  Company Number: US-ROCHE-1068393

PATIENT
  Sex: Male

DRUGS (4)
  1. PEG-INTERFERON ALFA 2A [Suspect]
     Indication: CHRONIC HEPATITIS C
     Route: 058
     Dates: start: 20120413
  2. PEG-INTERFERON ALFA 2A [Suspect]
     Indication: HIV INFECTION
  3. RIBASPHERE [Suspect]
     Indication: CHRONIC HEPATITIS C
     Route: 048
     Dates: start: 20120413
  4. RIBASPHERE [Suspect]
     Indication: HIV INFECTION

REACTIONS (8)
  - Gallbladder operation [Unknown]
  - Flatulence [Unknown]
  - Abdominal discomfort [Unknown]
  - Stomatitis [Unknown]
  - White blood cell count decreased [Unknown]
  - Neutrophil count abnormal [Unknown]
  - Neutrophil count decreased [Unknown]
  - White blood cell count decreased [Unknown]
